FAERS Safety Report 10039742 (Version 3)
Quarter: 2014Q2

REPORT INFORMATION
  Report Type: Spontaneous
  Country: AT (occurrence: AT)
  Receive Date: 20140326
  Receipt Date: 20140414
  Transmission Date: 20141212
  Serious: Yes (Hospitalization, Other)
  Sender: FDA-Public Use
  Company Number: AT-JNJFOC-20140215676

PATIENT
  Age: 75 Year
  Sex: Male
  Weight: 78 kg

DRUGS (3)
  1. XARELTO [Suspect]
     Indication: ATRIAL FIBRILLATION
     Route: 048
     Dates: end: 20131225
  2. XARELTO [Suspect]
     Indication: CEREBROVASCULAR ACCIDENT PROPHYLAXIS
     Route: 048
     Dates: end: 20131225
  3. LANSOPRAZOL [Concomitant]
     Route: 065

REACTIONS (14)
  - Melaena [Recovered/Resolved with Sequelae]
  - Diverticulum intestinal haemorrhagic [Recovered/Resolved with Sequelae]
  - Haematochezia [Recovered/Resolved with Sequelae]
  - Lower gastrointestinal haemorrhage [Recovered/Resolved with Sequelae]
  - Anaemia [Recovered/Resolved with Sequelae]
  - Abdominal wall haematoma [Unknown]
  - Cholecystitis [Unknown]
  - Urinary tract infection [Unknown]
  - Circulatory collapse [Unknown]
  - Respiratory failure [Unknown]
  - Post procedural oedema [Unknown]
  - Hypokalaemia [Unknown]
  - Diarrhoea [Unknown]
  - Malaise [Unknown]
